FAERS Safety Report 4684518-2 (Version None)
Quarter: 2005Q2

REPORT INFORMATION
  Report Type: 
  Country: None (occurrence: None)
  Receive Date: 20050531
  Receipt Date: 20041216
  Transmission Date: 20051028
  Serious: Yes (Hospitalization, Other)
  Sender: FDA-Public Use
  Company Number: US_0406103466

PATIENT
  Age: 43 Year
  Sex: Male
  Weight: 91 kg

DRUGS (6)
  1. ZYPREXA [Suspect]
     Indication: PSYCHOTIC DISORDER
     Dosage: 20 MG DAY
     Dates: start: 20011201, end: 20020602
  2. GEODON [Concomitant]
  3. TRILAFON (PERPHENAZINE ENANTATE) [Concomitant]
  4. TEGRETOL (CARBAMAZEPINE RIVOPHARM) [Concomitant]
  5. DEPAKOTE [Concomitant]
  6. CELEXA [Concomitant]

REACTIONS (5)
  - DELIRIUM [None]
  - DIABETES MELLITUS INSULIN-DEPENDENT [None]
  - DIABETIC COMA [None]
  - DIABETIC KETOACIDOSIS [None]
  - PANCREATITIS [None]
